FAERS Safety Report 13998851 (Version 1)
Quarter: 2017Q3

REPORT INFORMATION
  Report Type: Not Available
  Country: US (occurrence: US)
  Receive Date: 20170921
  Receipt Date: 20170921
  Transmission Date: 20171128
  Serious: No
  Sender: FDA-Public Use
  Company Number: US-NEUROCRINE BIOSCIENCES INC.-2017NBI00687

PATIENT
  Sex: Male
  Weight: 99.88 kg

DRUGS (10)
  1. LISINOPRIL. [Concomitant]
     Active Substance: LISINOPRIL
  2. PAXIL [Concomitant]
     Active Substance: PAROXETINE HYDROCHLORIDE
  3. AMLODIPINE [Concomitant]
     Active Substance: AMLODIPINE BESYLATE
  4. INGREZZA [Suspect]
     Active Substance: VALBENAZINE
     Indication: TARDIVE DYSKINESIA
     Dosage: AT BEDTIME
     Route: 048
     Dates: start: 201706
  5. KLONOPIN [Concomitant]
     Active Substance: CLONAZEPAM
  6. ACETAMINOPHEN/NSAID/ASPIRIN/CAFFEINE [Concomitant]
  7. ESZOPICLONE. [Concomitant]
     Active Substance: ESZOPICLONE
  8. LINOLEIC ACID [Concomitant]
     Active Substance: LINOLEIC ACID
  9. TRAZODONE [Concomitant]
     Active Substance: TRAZODONE HYDROCHLORIDE
  10. SIMVASTATIN. [Concomitant]
     Active Substance: SIMVASTATIN

REACTIONS (1)
  - Nasal congestion [Not Recovered/Not Resolved]
